FAERS Safety Report 5845319-2 (Version None)
Quarter: 2008Q3

REPORT INFORMATION
  Report Type: 
  Country: None (occurrence: None)
  Receive Date: 20080814
  Receipt Date: 20080813
  Transmission Date: 20090109
  Serious: Yes (Hospitalization)
  Sender: FDA-Public Use
  Company Number: US-GENENTECH-265217

PATIENT
  Sex: Male
  Weight: 70 kg

DRUGS (11)
  1. EFALIZUMAB [Suspect]
     Indication: RENAL TRANSPLANT
     Dosage: 70 MG, 1/WEEK
     Route: 058
     Dates: start: 20080318
  2. EFALIZUMAB [Suspect]
     Indication: IMMUNOSUPPRESSION
  3. PRAVASTATIN [Concomitant]
     Indication: DRUG USE FOR UNKNOWN INDICATION
     Dosage: 20 MG, QHS
     Route: 048
     Dates: start: 20060311
  4. CELLCEPT [Concomitant]
     Indication: DRUG USE FOR UNKNOWN INDICATION
     Dosage: UNK
     Dates: start: 20070907
  5. CELLCEPT [Concomitant]
     Dosage: 250 MG, BID
     Route: 048
     Dates: start: 20080618
  6. PREDNISONE TAB [Concomitant]
     Indication: DRUG USE FOR UNKNOWN INDICATION
     Dosage: 5 MG, QD
     Route: 048
     Dates: start: 20070907
  7. PEPCID [Concomitant]
     Indication: DRUG USE FOR UNKNOWN INDICATION
     Dosage: UNK
     Dates: start: 20070910
  8. LOPRESSOR [Concomitant]
     Indication: DRUG USE FOR UNKNOWN INDICATION
     Dosage: 50 MG, BID
     Route: 048
     Dates: start: 20070920
  9. PROCARDIA [Concomitant]
     Indication: DRUG USE FOR UNKNOWN INDICATION
     Dosage: UNK
     Dates: start: 20070920
  10. NPH ILETIN II [Concomitant]
     Indication: DRUG USE FOR UNKNOWN INDICATION
     Dosage: 30 UNIT, QHS
     Route: 058
     Dates: start: 20071220
  11. GLYBURIDE [Concomitant]
     Indication: DRUG USE FOR UNKNOWN INDICATION
     Dosage: 5 MG, QD
     Route: 048
     Dates: start: 20071220

REACTIONS (3)
  - HERPES ZOSTER DISSEMINATED [None]
  - NAUSEA [None]
  - VOMITING [None]
